FAERS Safety Report 4399336-2 (Version None)
Quarter: 2004Q3

REPORT INFORMATION
  Report Type: 
  Country: None (occurrence: None)
  Receive Date: 20040712
  Receipt Date: 20040709
  Transmission Date: 20050211
  Serious: Yes (Death, Hospitalization)
  Sender: FDA-Public Use
  Company Number: HQWYE770929JUN04

PATIENT
  Sex: Female

DRUGS (2)
  1. ADVIL [Suspect]
     Dosage: ORAL
     Route: 048
     Dates: start: 20040101, end: 20040101
  2. DOLIPRANE (PARACETAMOL) [Concomitant]

REACTIONS (3)
  - CONDITION AGGRAVATED [None]
  - MALAISE [None]
  - SHOCK [None]
